FAERS Safety Report 9889261 (Version 1)
Quarter: 2014Q1

REPORT INFORMATION
  Report Type: Other
  Country: US (occurrence: US)
  Receive Date: 20140211
  Receipt Date: 20140211
  Transmission Date: 20141002
  Serious: Yes (Hospitalization, Disabling, Other)
  Sender: FDA-Public Use
  Company Number: US-PURDUE-USA-2014-0111000

PATIENT
  Age: 53 Year
  Sex: Male

DRUGS (4)
  1. OXYCODONE HYDROCHLORIDE [Suspect]
     Indication: PAIN
  2. IBUPROFEN [Suspect]
     Indication: PAIN
  3. EXCEDRIN /00110301/ [Suspect]
     Indication: PAIN
  4. CANNABIS [Suspect]
     Indication: PAIN

REACTIONS (8)
  - Drug dependence [Unknown]
  - Paraplegia [Unknown]
  - Paralysis [Unknown]
  - Paraparesis [Unknown]
  - Post procedural haematoma [Unknown]
  - Spinal cord compression [Unknown]
  - Muscular weakness [Unknown]
  - Back pain [Unknown]
